FAERS Safety Report 21008485 (Version 2)
Quarter: 2022Q2

REPORT INFORMATION
  Report Type: Report from Study
  Country: US (occurrence: US)
  Receive Date: 20220627
  Receipt Date: 20220629
  Transmission Date: 20220720
  Serious: Yes (Hospitalization, Other)
  Sender: FDA-Public Use
  Company Number: US-ABBVIE-22K-163-4447593-00

PATIENT
  Sex: Female

DRUGS (2)
  1. SKYRIZI [Suspect]
     Active Substance: RISANKIZUMAB-RZAA
     Indication: Psoriasis
     Route: 058
     Dates: start: 20191120
  2. SKYRIZI [Suspect]
     Active Substance: RISANKIZUMAB-RZAA
     Indication: Psoriasis

REACTIONS (5)
  - Skin cancer [Recovering/Resolving]
  - Myocardial infarction [Recovered/Resolved]
  - Arterial occlusive disease [Recovering/Resolving]
  - Diarrhoea [Recovered/Resolved]
  - Respiratory tract infection [Recovered/Resolved]
